FAERS Safety Report 9503155 (Version 3)
Quarter: 2013Q4

REPORT INFORMATION
  Report Type: Spontaneous
  Country: US (occurrence: US)
  Receive Date: 20130906
  Receipt Date: 20131203
  Transmission Date: 20140711
  Serious: Yes (Hospitalization)
  Sender: FDA-Public Use
  Company Number: US-PFIZER INC-2013256194

PATIENT
  Age: 64 Year
  Sex: Female

DRUGS (1)
  1. CELEBREX [Suspect]
     Indication: MYALGIA
     Dosage: 200 MG, 1X/DAY
     Route: 048
     Dates: start: 20130827, end: 20130828

REACTIONS (9)
  - Erythema [Not Recovered/Not Resolved]
  - Lip swelling [Recovered/Resolved]
  - Swelling face [Recovered/Resolved]
  - Swollen tongue [Recovered/Resolved]
  - Rash [Recovered/Resolved]
  - Pruritus [Recovered/Resolved]
  - Urticaria [Recovered/Resolved]
  - Pruritus generalised [Recovered/Resolved]
  - Swelling [Recovered/Resolved]
